FAERS Safety Report 21066342 (Version 2)
Quarter: 2022Q3

REPORT INFORMATION
  Report Type: Report from Study
  Country: RO (occurrence: RO)
  Receive Date: 20220711
  Receipt Date: 20220718
  Transmission Date: 20221026
  Serious: Yes (Life-Threatening, Hospitalization, Other)
  Sender: FDA-Public Use
  Company Number: RO-BRISTOL-MYERS SQUIBB COMPANY-2022-071425

PATIENT
  Age: 78 Year
  Sex: Male
  Weight: 75 kg

DRUGS (12)
  1. NIVOLUMAB [Suspect]
     Active Substance: NIVOLUMAB
     Indication: Prostate cancer
     Dosage: THE MOST RECENT DOSE ON 29-JUN-2022
     Route: 042
     Dates: start: 20220201, end: 20220629
  2. DOCETAXEL [Suspect]
     Active Substance: DOCETAXEL
     Indication: Prostate cancer
     Dosage: THE MOST RECENT DOSE ON 29-JUN-2022
     Route: 065
     Dates: start: 20220201, end: 20220629
  3. PREDNISONE [Concomitant]
     Active Substance: PREDNISONE
     Indication: Prostate cancer
     Dosage: 1ST DOSE: 01-FEB-2022 TO 21-FEB-2022?THE MOST RECENT DOSE ON 29-JUN-2022
     Route: 065
     Dates: start: 20220201, end: 20220629
  4. INDAPAMIDE [Concomitant]
     Active Substance: INDAPAMIDE
     Indication: Product used for unknown indication
     Route: 048
     Dates: start: 2020
  5. METHYLPREDNISOLONE [Concomitant]
     Active Substance: METHYLPREDNISOLONE
     Indication: Prophylaxis
     Dosage: 30-JUN-2022
     Route: 048
     Dates: start: 20220628
  6. METHYLPREDNISOLONE [Concomitant]
     Active Substance: METHYLPREDNISOLONE
     Route: 048
     Dates: start: 20220628, end: 20220628
  7. FAMOTIDINUM [Concomitant]
     Indication: Prophylaxis
     Route: 048
     Dates: start: 20220628, end: 20220630
  8. FAMOTIDINUM [Concomitant]
     Route: 048
     Dates: start: 20220628, end: 20220628
  9. FAMOTIDINUM [Concomitant]
     Route: 048
     Dates: start: 20220629, end: 20220629
  10. ACIDUM ZOLEDRONIC [Concomitant]
     Indication: Product used for unknown indication
     Route: 042
     Dates: start: 20151019
  11. LORATADINUM [Concomitant]
     Indication: Product used for unknown indication
     Route: 048
     Dates: start: 20220629, end: 20220629
  12. DEXAMETHASONE [Concomitant]
     Active Substance: DEXAMETHASONE
     Indication: Product used for unknown indication
     Route: 042
     Dates: start: 20220629, end: 20220629

REACTIONS (1)
  - Syncope [Recovered/Resolved]

NARRATIVE: CASE EVENT DATE: 20220705
